FAERS Safety Report 15628484 (Version 1)
Quarter: 2018Q4

REPORT INFORMATION
  Report Type: Spontaneous
  Country: US (occurrence: US)
  Receive Date: 20181116
  Receipt Date: 20181116
  Transmission Date: 20190205
  Serious: No
  Sender: FDA-Public Use
  Company Number: US-PFIZER INC-2018470350

PATIENT
  Age: 58 Year
  Sex: Male
  Weight: 99.79 kg

DRUGS (3)
  1. ARTHROTEC [Suspect]
     Active Substance: DICLOFENAC SODIUM\MISOPROSTOL
     Dosage: UNK
  2. LYRICA [Suspect]
     Active Substance: PREGABALIN
     Dosage: UNK
  3. SKELAXIN [Suspect]
     Active Substance: METAXALONE
     Dosage: UNK

REACTIONS (1)
  - Back pain [Unknown]

NARRATIVE: CASE EVENT DATE: 201810
